FAERS Safety Report 6185094-8 (Version None)
Quarter: 2009Q2

REPORT INFORMATION
  Report Type: 
  Country: None (occurrence: None)
  Receive Date: 20090511
  Receipt Date: 20090430
  Transmission Date: 20091009
  Serious: Yes (Other)
  Sender: FDA-Public Use
  Company Number: NL-JNJFOC-20090500660

PATIENT
  Sex: Male
  Weight: 120 kg

DRUGS (5)
  1. RISPERDAL [Suspect]
     Indication: SCHIZOPHRENIA
     Route: 065
  2. PROZAC [Concomitant]
     Route: 065
  3. AERIUS [Concomitant]
     Route: 065
  4. FLUOXETINE HCL [Concomitant]
     Route: 065
  5. DESLORATADINE [Concomitant]
     Route: 065

REACTIONS (6)
  - DEPRESSION [None]
  - ERECTILE DYSFUNCTION [None]
  - FATIGUE [None]
  - FEELING ABNORMAL [None]
  - SUICIDAL IDEATION [None]
  - WEIGHT INCREASED [None]
